FAERS Safety Report 8406592-X (Version None)
Quarter: 2012Q2

REPORT INFORMATION
  Report Type: 
  Country: None (occurrence: None)
  Receive Date: 20120529
  Receipt Date: 19991116
  Transmission Date: 20120825
  Serious: Yes (Death, Life-Threatening)
  Sender: FDA-Public Use
  Company Number: 02100-JPN-99-0148

PATIENT
  Age: 45 Year
  Sex: Male

DRUGS (2)
  1. UROKINASE + DEXTRAN 40 [Suspect]
     Indication: THROMBOANGIITIS OBLITERANS
     Dosage: IV DRIP
     Route: 041
     Dates: start: 19991103, end: 19991105
  2. PLETAL [Suspect]
     Indication: THROMBOANGIITIS OBLITERANS
     Dosage: ORAL
     Route: 048
     Dates: start: 19991104, end: 19991105

REACTIONS (5)
  - RESPIRATORY ARREST [None]
  - COMA [None]
  - BRAIN STEM ISCHAEMIA [None]
  - HYDROCEPHALUS [None]
  - CEREBRAL ARTERY EMBOLISM [None]
